FAERS Safety Report 6120011-8 (Version None)
Quarter: 2009Q1

REPORT INFORMATION
  Report Type: 
  Country: None (occurrence: None)
  Receive Date: 20090316
  Receipt Date: 20090309
  Transmission Date: 20090719
  Serious: Yes (Life-Threatening, Hospitalization, Other)
  Sender: FDA-Public Use
  Company Number: FI-ROXANE LABORATORIES, INC.-2009-RO-00218RO

PATIENT
  Age: 38 Year
  Sex: Male

DRUGS (19)
  1. AMLODIPINE BESYLATE [Suspect]
  2. CITALOPRAM HYDROBROMIDE [Suspect]
  3. ZOPICLONE [Suspect]
  4. PARACETAMOL [Suspect]
  5. ACTIVATED CHARCOAL [Concomitant]
     Indication: OVERDOSE
  6. GLUCAGON [Concomitant]
     Route: 042
  7. GLUCAGON [Concomitant]
     Route: 042
  8. CALCIUM [Concomitant]
     Route: 042
  9. CALCIUM [Concomitant]
     Route: 042
  10. DOPAMINE HCL [Concomitant]
     Route: 042
  11. NOREPINEPHRINE [Concomitant]
  12. NOREPINEPHRINE [Concomitant]
  13. NOREPINEPHRINE [Concomitant]
  14. INSULIN [Concomitant]
  15. DEXTROSE [Concomitant]
  16. DOBUTAMINE HCL [Concomitant]
     Indication: VENTRICULAR DYSFUNCTION
  17. VASOPRESSIN [Concomitant]
  18. LEVOSIMENDAN [Concomitant]
  19. LEVOSIMENDAN [Concomitant]

REACTIONS (5)
  - CIRCULATORY COLLAPSE [None]
  - COMA [None]
  - LACTIC ACIDOSIS [None]
  - OVERDOSE [None]
  - PNEUMONIA [None]
